FAERS Safety Report 6558247-4 (Version None)
Quarter: 2010Q1

REPORT INFORMATION
  Report Type: 
  Country: None (occurrence: None)
  Receive Date: 20100128
  Receipt Date: 20100128
  Transmission Date: 20100710
  Serious: Yes (Other)
  Sender: FDA-Public Use
  Company Number: None

PATIENT
  Sex: Female
  Weight: 102.9665 kg

DRUGS (2)
  1. CRESTOR [Suspect]
     Indication: BLOOD CHOLESTEROL INCREASED
     Dosage: 1 TABLET DAILY
     Dates: start: 20090513, end: 20091004
  2. NEURONTIN [Suspect]
     Indication: SCIATICA
     Dosage: 1 OR 2 CAPSULES 3X DAILY
     Dates: start: 20090928

REACTIONS (3)
  - FATIGUE [None]
  - MUSCLE SPASMS [None]
  - MYALGIA [None]
